FAERS Safety Report 16460047 (Version 1)
Quarter: 2019Q2

REPORT INFORMATION
  Report Type: Spontaneous
  Country: CA (occurrence: CA)
  Receive Date: 20190620
  Receipt Date: 20190620
  Transmission Date: 20190711
  Serious: Yes (Disabling)
  Sender: FDA-Public Use
  Company Number: CA-TEVA-2019-CA-1066211

PATIENT
  Age: 68 Year
  Sex: Male
  Weight: 90.8 kg

DRUGS (3)
  1. GABAPENTIN. [Suspect]
     Active Substance: GABAPENTIN
     Indication: WOUND COMPLICATION
     Dosage: 2 UNKNOWN DAILY;
     Route: 048
  2. INSULIN [Concomitant]
     Active Substance: INSULIN NOS
  3. OXYCONTIN [Suspect]
     Active Substance: OXYCODONE HYDROCHLORIDE
     Indication: WOUND COMPLICATION
     Dosage: 2 UNKNOWN DAILY;
     Route: 048

REACTIONS (3)
  - Loss of consciousness [Recovering/Resolving]
  - Haemorrhage [Recovering/Resolving]
  - Head injury [Recovering/Resolving]
